FAERS Safety Report 8546760 (Version 5)
Quarter: 2013Q2

REPORT INFORMATION
  Report Type: Report from Study
  Country: JP (occurrence: JP)
  Receive Date: 20120504
  Receipt Date: 20130618
  Transmission Date: 20140414
  Serious: Yes (Hospitalization)
  Sender: FDA-Public Use
  Company Number: JP-INCYTE CORPORATION-2012IN000678

PATIENT
  Age: 66 Year
  Sex: Male
  Weight: 61 kg

DRUGS (34)
  1. INC424 [Suspect]
     Indication: MYELOFIBROSIS
     Dosage: 20 MG, BID
     Route: 048
     Dates: start: 20120316, end: 20120415
  2. INC424 [Suspect]
     Dosage: 15 MG, BID
     Route: 048
     Dates: start: 20120416, end: 20120508
  3. INC424 [Suspect]
     Dosage: 10 MG, BID
     Dates: start: 20120509, end: 20120520
  4. INC424 [Suspect]
     Dosage: 15 MG, BID
     Route: 048
     Dates: start: 20120521, end: 20120604
  5. INC424 [Suspect]
     Dosage: 10 MG, BID
     Route: 048
     Dates: start: 20120605, end: 20120606
  6. INC424 [Suspect]
     Dosage: 5 MG, BID
     Route: 048
     Dates: start: 20120607, end: 20120622
  7. INC424 [Suspect]
     Dosage: 10 MG, BID
     Route: 048
     Dates: start: 20120623
  8. INC424 [Suspect]
     Dosage: 30 MG, QD
     Route: 048
     Dates: start: 20130110
  9. NEORAL [Suspect]
     Indication: ACUTE FEBRILE NEUTROPHILIC DERMATOSIS
     Dosage: 50 MG, QD
     Route: 048
     Dates: start: 20120814, end: 20120823
  10. NEORAL [Suspect]
     Dosage: 25 MG, QD
     Route: 048
     Dates: start: 20120827
  11. NEORAL [Suspect]
     Dosage: 50 MG, QD
     Route: 048
     Dates: start: 20121006, end: 20121214
  12. EXJADE [Concomitant]
     Dosage: UNK
     Dates: start: 201008
  13. RENIVACE [Concomitant]
     Dosage: UNK
     Dates: start: 1991
  14. NORVASC [Concomitant]
     Dosage: UNK
     Dates: start: 1991
  15. ALOSITOL [Concomitant]
     Dosage: UNK
     Dates: start: 20120314
  16. CANDESARTAN CILEXETIL W/HYDROCHLOROTHIAZIDE [Concomitant]
     Dosage: UNK
     Dates: start: 20120531
  17. ZOVIRAX [Concomitant]
     Dosage: UNK
     Dates: start: 20120412
  18. LASIX [Concomitant]
     Dosage: UNK
     Dates: start: 20120707
  19. TAKEPRON [Concomitant]
     Dosage: UNK
     Dates: start: 20120412
  20. PROMAC [Concomitant]
     Dosage: UNK
     Dates: start: 20120412
  21. URSO [Concomitant]
     Dosage: UNK
     Dates: start: 20120528
  22. ALDACTONE [Concomitant]
     Dosage: UNK
     Dates: start: 20120803
  23. BAKTAR [Concomitant]
     Dosage: UNK
     Dates: start: 20120412
  24. CELECOXIB [Concomitant]
     Dosage: UNK
     Dates: start: 20121214
  25. FUNGIZONE [Concomitant]
     Dosage: UNK
     Dates: start: 20120608
  26. PREDNISOLONE [Suspect]
     Indication: ACUTE FEBRILE NEUTROPHILIC DERMATOSIS
     Dosage: 15 MG, QD
     Route: 048
     Dates: start: 20120212
  27. PREDNISOLONE [Suspect]
     Indication: ALANINE AMINOTRANSFERASE INCREASED
     Dosage: 40 MG, QD
     Route: 048
     Dates: start: 20120412, end: 20120418
  28. PREDNISOLONE [Suspect]
     Dosage: 30 MG, QD
     Route: 048
     Dates: start: 20120419, end: 20120424
  29. PREDNISOLONE [Suspect]
     Dosage: 25 MG, QD
     Route: 048
     Dates: start: 20120425, end: 20120509
  30. PREDNISOLONE [Suspect]
     Dosage: 25 MG, QD
     Route: 048
     Dates: start: 20120510, end: 20120616
  31. PREDNISOLONE [Suspect]
     Dosage: 30 MG, QD
     Route: 048
     Dates: start: 20120617, end: 20120904
  32. PREDNISOLONE [Suspect]
     Dosage: 17 MG, QD
     Route: 048
     Dates: start: 20120905
  33. PREDNISOLONE [Suspect]
     Dosage: 35 MG, QD
     Route: 048
     Dates: start: 20130102, end: 20130111
  34. PREDNISOLONE [Suspect]
     Dosage: 13 MG, QD
     Route: 048
     Dates: start: 20130511

REACTIONS (6)
  - Pneumonia [None]
  - Impetigo [Recovering/Resolving]
  - Pyrexia [Recovered/Resolved]
  - Acute febrile neutrophilic dermatosis [Recovered/Resolved]
  - Cellulitis [Recovering/Resolving]
  - Upper respiratory tract infection [Recovered/Resolved]
